FAERS Safety Report 6396306-X (Version None)
Quarter: 2009Q4

REPORT INFORMATION
  Report Type: 
  Country: None (occurrence: None)
  Receive Date: 20091012
  Receipt Date: 20080414
  Transmission Date: 20100525
  Serious: Yes (Other)
  Sender: FDA-Public Use
  Company Number: US-ASTRAZENECA-2008UW01682

PATIENT
  Age: 40 Year
  Sex: Female
  Weight: 79.4 kg

DRUGS (16)
  1. SEROQUEL [Suspect]
     Indication: HALLUCINATION, AUDITORY
     Dosage: VARIOUS (INCLUDING BUT NOT LIMITED TO 200 MG)
     Route: 048
     Dates: start: 19990101
  2. SEROQUEL [Suspect]
     Indication: SLEEP DISORDER
     Dosage: VARIOUS (INCLUDING BUT NOT LIMITED TO 200 MG)
     Route: 048
     Dates: start: 19990101
  3. SEROQUEL [Suspect]
     Route: 048
     Dates: start: 20040523
  4. SEROQUEL [Suspect]
     Route: 048
     Dates: start: 20040523
  5. ZYPREXA [Concomitant]
     Dates: start: 19990101, end: 20010101
  6. PREGANOLIN [Concomitant]
     Dates: start: 20080117
  7. PROZAC [Concomitant]
     Dates: start: 20000101
  8. PROZAC [Concomitant]
     Dosage: 20 - 60 MG DAILY
     Route: 048
     Dates: start: 20020623
  9. LITHIUM [Concomitant]
     Dates: start: 20000101
  10. LITHIUM [Concomitant]
     Route: 048
     Dates: start: 19970101
  11. TEGRETOL [Concomitant]
     Route: 048
     Dates: start: 20020623
  12. KLONOPIN [Concomitant]
     Dosage: 0.5 - 1 MG DAILY
     Route: 048
     Dates: start: 19970101
  13. TRAZODONE [Concomitant]
     Dosage: 25 - 850 MG AT NIGHT
     Dates: start: 20020623
  14. ZOCOR [Concomitant]
     Dates: start: 20071024
  15. PRILOSEC [Concomitant]
     Indication: GASTROOESOPHAGEAL REFLUX DISEASE
     Dosage: 20 MG DAILY AS REQUIRED
     Dates: start: 20001006
  16. ZOLOFT [Concomitant]
     Dosage: 100 - 150 MG DAILY
     Dates: start: 19970101

REACTIONS (5)
  - DIABETES MELLITUS [None]
  - DIABETES MELLITUS INADEQUATE CONTROL [None]
  - DIABETIC NEUROPATHY [None]
  - GLUCOSE TOLERANCE IMPAIRED [None]
  - OBESITY [None]
